FAERS Safety Report 16442744 (Version 2)
Quarter: 2019Q3

REPORT INFORMATION
  Report Type: Report from Study
  Country: US (occurrence: US)
  Receive Date: 20190617
  Receipt Date: 20190814
  Transmission Date: 20191004
  Serious: Yes (Hospitalization)
  Sender: FDA-Public Use
  Company Number: US-EISAI MEDICAL RESEARCH-EC-2019-056373

PATIENT
  Sex: Male
  Weight: 82 kg

DRUGS (6)
  1. LENVIMA [Suspect]
     Active Substance: LENVATINIB
     Indication: METASTASES TO LUNG
  2. LENVIMA [Suspect]
     Active Substance: LENVATINIB
     Indication: RENAL CANCER
     Dosage: 5 DAYS ON AND 2 DAYS OFF
     Route: 048
     Dates: start: 201908
  3. ANORO ELLIPTA [Concomitant]
     Active Substance: UMECLIDINIUM BROMIDE\VILANTEROL TRIFENATATE
  4. LISINOPRIL. [Concomitant]
     Active Substance: LISINOPRIL
  5. ELIQUIS [Concomitant]
     Active Substance: APIXABAN
  6. LENVIMA [Suspect]
     Active Substance: LENVATINIB
     Indication: RENAL CELL CARCINOMA
     Route: 048
     Dates: start: 20190422, end: 201908

REACTIONS (13)
  - Dehydration [Unknown]
  - Fatigue [Unknown]
  - Abdominal pain [Unknown]
  - Muscular weakness [Unknown]
  - Herpes zoster [Unknown]
  - Pruritus generalised [Not Recovered/Not Resolved]
  - Burning sensation [Unknown]
  - Blood pressure increased [Unknown]
  - Fatigue [Unknown]
  - Joint swelling [Unknown]
  - Ulcer [Unknown]
  - Diarrhoea [Unknown]
  - Constipation [Unknown]

NARRATIVE: CASE EVENT DATE: 2019
